FAERS Safety Report 11465892 (Version 1)
Quarter: 2015Q3

REPORT INFORMATION
  Report Type: Spontaneous
  Country: US (occurrence: US)
  Receive Date: 20150907
  Receipt Date: 20150907
  Transmission Date: 20151125
  Serious: No
  Sender: FDA-Public Use
  Company Number: US-BAYER-2015-416511

PATIENT
  Age: 75 Year
  Sex: Male

DRUGS (1)
  1. ALEVE [Suspect]
     Active Substance: NAPROXEN SODIUM
     Indication: MYALGIA
     Dosage: 2 DF, ONCE
     Route: 048

REACTIONS (2)
  - Product use issue [None]
  - Dysgeusia [Unknown]

NARRATIVE: CASE EVENT DATE: 20150902
